FAERS Safety Report 5732822-9 (Version None)
Quarter: 2008Q2

REPORT INFORMATION
  Report Type: 
  Country: None (occurrence: None)
  Receive Date: 20080507
  Receipt Date: 20080507
  Transmission Date: 20081010
  Serious: Yes (Life-Threatening, Hospitalization, Disabling, Other)
  Sender: FDA-Public Use
  Company Number: None

PATIENT
  Sex: Female
  Weight: 89.3586 kg

DRUGS (2)
  1. CORICIDIN [Suspect]
  2. ROBITUSSIN [Suspect]

REACTIONS (1)
  - DRUG ABUSER [None]
